FAERS Safety Report 4745020-2 (Version None)
Quarter: 2005Q3

REPORT INFORMATION
  Report Type: 
  Country: None (occurrence: None)
  Receive Date: 20050812
  Receipt Date: 20050812
  Transmission Date: 20060218
  Serious: Yes (Other)
  Sender: FDA-Public Use
  Company Number: None

PATIENT
  Age: 46 Year
  Sex: Male

DRUGS (2)
  1. VANCOMYCIN [Suspect]
     Indication: ARTHRITIS BACTERIAL
     Dosage: 1GM IV Q 12 HOURS MB+
  2. VANCOMYCIN [Suspect]

REACTIONS (4)
  - GENERALISED ERYTHEMA [None]
  - NEUTROPENIA [None]
  - PRURITUS [None]
  - RASH [None]
